FAERS Safety Report 4447586-9 (Version None)
Quarter: 2004Q3

REPORT INFORMATION
  Report Type: 
  Country: None (occurrence: None)
  Receive Date: 20040823
  Receipt Date: 20040618
  Transmission Date: 20050211
  Serious: No
  Sender: FDA-Public Use
  Company Number: PHEH2004US06671

PATIENT
  Age: 68 Year
  Sex: Female

DRUGS (2)
  1. ZELNORM [Suspect]
     Indication: CONSTIPATION
     Dosage: 6 MG, BID, ORAL
     Route: 048
     Dates: start: 20040606
  2. NEXIUM [Suspect]
     Indication: OESOPHAGEAL PAIN
     Dosage: 40 MG, QD, ORAL
     Route: 048
     Dates: start: 20040606

REACTIONS (3)
  - CONSTIPATION [None]
  - DRUG INEFFECTIVE [None]
  - OESOPHAGEAL PAIN [None]
